FAERS Safety Report 6386108-2 (Version None)
Quarter: 2009Q4

REPORT INFORMATION
  Report Type: 
  Country: None (occurrence: None)
  Receive Date: 20091002
  Receipt Date: 20081223
  Transmission Date: 20100525
  Serious: No
  Sender: FDA-Public Use
  Company Number: US-ASTRAZENECA-2008UW28692

PATIENT
  Age: 65 Year
  Sex: Female

DRUGS (5)
  1. ARIMIDEX [Suspect]
     Indication: BREAST CANCER
     Dosage: UNKNOWN
     Route: 048
     Dates: start: 20071001
  2. INSULIN [Concomitant]
  3. DIOVAN [Concomitant]
  4. VERAPAMIL [Concomitant]
  5. METOPROLOL [Concomitant]

REACTIONS (1)
  - NEUROPATHY PERIPHERAL [None]
